FAERS Safety Report 13895376 (Version 5)
Quarter: 2018Q4

REPORT INFORMATION
  Report Type: Report from Study
  Country: None (occurrence: US)
  Receive Date: 20170823
  Receipt Date: 20181130
  Transmission Date: 20190204
  Serious: Yes (Hospitalization, Other)
  Sender: FDA-Public Use
  Company Number: US-ABBVIE-17K-163-2078284-00

PATIENT
  Sex: Female

DRUGS (2)
  1. HUMIRA [Suspect]
     Active Substance: ADALIMUMAB
     Route: 058
  2. HUMIRA [Suspect]
     Active Substance: ADALIMUMAB
     Indication: RHEUMATOID ARTHRITIS
     Route: 058
     Dates: end: 2016

REACTIONS (14)
  - Rheumatoid arthritis [Unknown]
  - Septic shock [Recovering/Resolving]
  - Cardiovascular disorder [Unknown]
  - Coma [Recovering/Resolving]
  - Gastrointestinal disorder [Unknown]
  - Depression [Unknown]
  - Drug ineffective [Not Recovered/Not Resolved]
  - Mobility decreased [Recovered/Resolved]
  - Thyroid disorder [Unknown]
  - General physical health deterioration [Unknown]
  - Pain in extremity [Recovering/Resolving]
  - Blood pressure abnormal [Unknown]
  - Musculoskeletal pain [Recovering/Resolving]
  - Gallbladder operation [Unknown]

NARRATIVE: CASE EVENT DATE: 2016
